FAERS Safety Report 12427295 (Version 1)
Quarter: 2016Q2

REPORT INFORMATION
  Report Type: Spontaneous
  Country: US (occurrence: US)
  Receive Date: 20160602
  Receipt Date: 20160602
  Transmission Date: 20160815
  Serious: Yes (Hospitalization, Other)
  Sender: FDA-Public Use
  Company Number: US-ROCHE-1764395

PATIENT
  Age: 45 Year
  Sex: Male

DRUGS (2)
  1. RITUXAN [Suspect]
     Active Substance: RITUXIMAB
     Indication: MICROSCOPIC POLYANGIITIS
  2. RITUXAN [Suspect]
     Active Substance: RITUXIMAB
     Indication: ANTI-NEUTROPHIL CYTOPLASMIC ANTIBODY POSITIVE VASCULITIS
     Dosage: YEARLY TREATMENTS AND SPORADIC MAINTENANCE DOSES
     Route: 065
     Dates: start: 2013

REACTIONS (2)
  - Pulmonary alveolar haemorrhage [Recovering/Resolving]
  - Pulmonary haemorrhage [Unknown]

NARRATIVE: CASE EVENT DATE: 20160416
